FAERS Safety Report 15027638 (Version 1)
Quarter: 2018Q2

REPORT INFORMATION
  Report Type: Spontaneous
  Country: US (occurrence: US)
  Receive Date: 20180525
  Receipt Date: 20180525
  Transmission Date: 20180711
  Serious: No
  Sender: FDA-Public Use
  Company Number: None

PATIENT
  Age: 65 Year
  Sex: Male

DRUGS (1)
  1. HEMLIBRA [Suspect]
     Active Substance: EMICIZUMAB-KXWH
     Indication: FACTOR VIII DEFICIENCY
     Route: 058
     Dates: start: 20180507

REACTIONS (6)
  - Oedema peripheral [None]
  - Vomiting [None]
  - Diarrhoea [None]
  - Pyrexia [None]
  - Chromaturia [None]
  - Impaired work ability [None]

NARRATIVE: CASE EVENT DATE: 20180507
